FAERS Safety Report 4476206-2 (Version None)
Quarter: 2004Q3

REPORT INFORMATION
  Report Type: 
  Country: None (occurrence: None)
  Receive Date: 20040923
  Receipt Date: 20040817
  Transmission Date: 20050211
  Serious: No
  Sender: FDA-Public Use
  Company Number: USA040774085

PATIENT
  Age: 73 Year
  Sex: Female

DRUGS (1)
  1. FORTEO [Suspect]
     Indication: OSTEOPOROSIS
     Dates: start: 20040401

REACTIONS (7)
  - BODY TEMPERATURE INCREASED [None]
  - DECREASED APPETITE [None]
  - DEHYDRATION [None]
  - DIARRHOEA [None]
  - INFECTION [None]
  - NAUSEA [None]
  - PAIN [None]
